FAERS Safety Report 20180527 (Version 4)
Quarter: 2022Q1

REPORT INFORMATION
  Report Type: Spontaneous
  Country: US (occurrence: US)
  Receive Date: 20211214
  Receipt Date: 20220223
  Transmission Date: 20220423
  Serious: Yes (Hospitalization, Other)
  Sender: FDA-Public Use
  Company Number: US-Global Blood Therapeutics Inc-US-GBT-21-03147

PATIENT
  Age: 59 Year
  Sex: Male

DRUGS (1)
  1. OXBRYTA [Suspect]
     Active Substance: VOXELOTOR
     Indication: Sickle cell disease
     Route: 048
     Dates: start: 202101

REACTIONS (8)
  - Sickle cell anaemia with crisis [Unknown]
  - Complication associated with device [Unknown]
  - Renal failure [Unknown]
  - Heart valve operation [Unknown]
  - Sickle cell anaemia with crisis [Unknown]
  - Dyspnoea [Not Recovered/Not Resolved]
  - Dialysis [Not Recovered/Not Resolved]
  - Fatigue [Not Recovered/Not Resolved]

NARRATIVE: CASE EVENT DATE: 20190501
